FAERS Safety Report 6222712-X (Version None)
Quarter: 2009Q2

REPORT INFORMATION
  Report Type: 
  Country: None (occurrence: None)
  Receive Date: 20090609
  Receipt Date: 20090609
  Transmission Date: 20091009
  Serious: Yes (Hospitalization, Other)
  Sender: FDA-Public Use
  Company Number: None

PATIENT
  Age: 63 Year
  Sex: Female
  Weight: 39.4629 kg

DRUGS (1)
  1. RESTORIL [Suspect]
     Indication: INITIAL INSOMNIA
     Dates: start: 20090419, end: 20090424

REACTIONS (19)
  - AGEUSIA [None]
  - ANXIETY [None]
  - ARTHRALGIA [None]
  - BURNING SENSATION [None]
  - DISORIENTATION [None]
  - DRUG HYPERSENSITIVITY [None]
  - EYE PAIN [None]
  - HYPOAESTHESIA [None]
  - INSOMNIA [None]
  - IRRITABILITY [None]
  - LETHARGY [None]
  - RASH [None]
  - SWELLING FACE [None]
  - SWOLLEN TONGUE [None]
  - THINKING ABNORMAL [None]
  - THIRST [None]
  - TINNITUS [None]
  - VASOSPASM [None]
  - VEIN PAIN [None]
